FAERS Safety Report 18005664 (Version 1)
Quarter: 2020Q3

REPORT INFORMATION
  Report Type: Spontaneous
  Country: US (occurrence: US)
  Receive Date: 20200709
  Receipt Date: 20200709
  Transmission Date: 20201103
  Serious: No
  Sender: FDA-Public Use
  Company Number: None

PATIENT
  Age: 58 Year
  Sex: Female
  Weight: 97.52 kg

DRUGS (5)
  1. MONTELUKAST SODIUM. [Concomitant]
     Active Substance: MONTELUKAST SODIUM
  2. ALPRAZOLAM 5MG TABLET #30 [Concomitant]
     Active Substance: ALPRAZOLAM
  3. ALBUTEROL SULFATE INHALATION AEROSOL [Suspect]
     Active Substance: ALBUTEROL SULFATE
     Indication: ASTHMA
     Dosage: ?          QUANTITY:2 PUFFS;?
     Route: 048
  4. VENTOLIN INHALANT [Concomitant]
  5. METFORMIN [Concomitant]
     Active Substance: METFORMIN HYDROCHLORIDE

REACTIONS (1)
  - Abdominal pain upper [None]
